FAERS Safety Report 5790200-0 (Version None)
Quarter: 2008Q2

REPORT INFORMATION
  Report Type: 
  Country: None (occurrence: None)
  Receive Date: 20080626
  Receipt Date: 20080424
  Transmission Date: 20081010
  Serious: No
  Sender: FDA-Public Use
  Company Number: A0704706A

PATIENT
  Sex: Female

DRUGS (1)
  1. ALLI [Suspect]
     Indication: DRUG USE FOR UNKNOWN INDICATION
     Dates: start: 20080101

REACTIONS (4)
  - FOOD CRAVING [None]
  - ILL-DEFINED DISORDER [None]
  - MENSTRUATION IRREGULAR [None]
  - NAUSEA [None]
